FAERS Safety Report 13332754 (Version 1)
Quarter: 2017Q1

REPORT INFORMATION
  Report Type: Spontaneous
  Country: US (occurrence: US)
  Receive Date: 20170314
  Receipt Date: 20170314
  Transmission Date: 20170428
  Serious: Yes (Other)
  Sender: FDA-Public Use
  Company Number: US-PFIZER INC-2017102507

PATIENT
  Age: 72 Year
  Sex: Male

DRUGS (6)
  1. FIRMAGON [Concomitant]
     Active Substance: DEGARELIX ACETATE
     Dosage: UNK
  2. THALOMID [Suspect]
     Active Substance: THALIDOMIDE
     Dosage: 50 MG, DAILY
     Route: 048
     Dates: start: 20160720
  3. CALCIUM CARBONATE. [Suspect]
     Active Substance: CALCIUM CARBONATE
     Dosage: UNK
  4. CELEBREX [Suspect]
     Active Substance: CELECOXIB
     Dosage: UNK
  5. LEUKINE [Concomitant]
     Active Substance: SARGRAMOSTIM
     Dosage: UNK
  6. THALOMID [Suspect]
     Active Substance: THALIDOMIDE
     Dosage: 50 MG, DAILY
     Route: 048
     Dates: start: 201209

REACTIONS (3)
  - Vitamin D increased [Unknown]
  - Angina pectoris [Unknown]
  - Blood calcium increased [Unknown]

NARRATIVE: CASE EVENT DATE: 2016
